FAERS Safety Report 9817776 (Version 1)
Quarter: 2014Q1

REPORT INFORMATION
  Report Type: Spontaneous
  Country: US (occurrence: None)
  Receive Date: 20140110
  Receipt Date: 20140110
  Transmission Date: 20141002
  Serious: Yes (Other)
  Sender: FDA-Public Use
  Company Number: None

PATIENT
  Age: 91 Year
  Sex: Female
  Weight: 49.9 kg

DRUGS (1)
  1. WARFARIN 5 MG TARO [Suspect]
     Indication: ATRIAL FIBRILLATION
     Dosage: 1 TAB ORAL
     Route: 048
     Dates: start: 20121001, end: 20140109

REACTIONS (2)
  - International normalised ratio increased [None]
  - No adverse event [None]
